FAERS Safety Report 23686111 (Version 1)
Quarter: 2024Q1

REPORT INFORMATION
  Report Type: Spontaneous
  Country: IN (occurrence: IN)
  Receive Date: 20240329
  Receipt Date: 20240329
  Transmission Date: 20240410
  Serious: Yes (Other)
  Sender: FDA-Public Use
  Company Number: IN-SUN PHARMACEUTICAL INDUSTRIES LTD-2024R1-438595

PATIENT
  Age: 56 Year
  Sex: Male

DRUGS (4)
  1. CHLORPROMAZINE [Suspect]
     Active Substance: CHLORPROMAZINE
     Indication: Mental disorder
     Dosage: 100 MILLIGRAM
     Route: 065
  2. VALPROIC ACID [Suspect]
     Active Substance: VALPROIC ACID
     Indication: Mental disorder
     Dosage: 500 MILLIGRAM, BID
     Route: 065
  3. RISPERIDONE [Concomitant]
     Active Substance: RISPERIDONE
     Indication: Mental disorder
     Route: 065
  4. TRIHEXYPHENIDYL [Concomitant]
     Active Substance: TRIHEXYPHENIDYL
     Indication: Mental disorder
     Dosage: UNK
     Route: 065

REACTIONS (1)
  - Parkinsonism [Recovering/Resolving]
